FAERS Safety Report 19157597 (Version 6)
Quarter: 2021Q3

REPORT INFORMATION
  Report Type: Report from Study
  Country: CO (occurrence: CO)
  Receive Date: 20210420
  Receipt Date: 20210913
  Transmission Date: 20211014
  Serious: Yes (Hospitalization, Other)
  Sender: FDA-Public Use
  Company Number: CO-BRISTOL-MYERS SQUIBB COMPANY-BMS-2021-035188

PATIENT
  Age: 55 Year
  Sex: Male
  Weight: 80 kg

DRUGS (3)
  1. DOLEX [CLONIXIN LYSINATE] [Concomitant]
     Indication: PRODUCT USED FOR UNKNOWN INDICATION
     Dosage: UNK
     Route: 065
  2. NIVOLUMAB [Suspect]
     Active Substance: NIVOLUMAB
     Indication: MALIGNANT MELANOMA
     Dosage: 246 MILLIGRAM, EVERY 15 DAYS
     Route: 042
     Dates: start: 20190510, end: 20210427
  3. ANALGESICS [Concomitant]
     Active Substance: UNSPECIFIED INGREDIENT
     Indication: PRODUCT USED FOR UNKNOWN INDICATION
     Dosage: UNK
     Route: 065

REACTIONS (14)
  - Metastases to central nervous system [Unknown]
  - Headache [Recovering/Resolving]
  - Vision blurred [Recovering/Resolving]
  - Skin exfoliation [Recovering/Resolving]
  - Vertigo [Unknown]
  - Eyelid oedema [Unknown]
  - Off label use [Unknown]
  - Influenza [Recovering/Resolving]
  - Dysphonia [Unknown]
  - Pyrexia [Recovering/Resolving]
  - Muscular weakness [Recovering/Resolving]
  - Abdominal pain upper [Recovering/Resolving]
  - Bradycardia [Recovering/Resolving]
  - Dermatitis bullous [Recovering/Resolving]

NARRATIVE: CASE EVENT DATE: 20190510
